FAERS Safety Report 9307110 (Version 1)
Quarter: 2013Q2

REPORT INFORMATION
  Report Type: Spontaneous
  Country: US (occurrence: US)
  Receive Date: 20130524
  Receipt Date: 20130524
  Transmission Date: 20140414
  Serious: No
  Sender: FDA-Public Use
  Company Number: US-009507513-1305USA012951

PATIENT
  Age: 65 Year
  Sex: Female

DRUGS (4)
  1. DULERA [Suspect]
     Indication: CHRONIC OBSTRUCTIVE PULMONARY DISEASE
     Dosage: 2 PUFFS TWICE A DAY
     Route: 048
     Dates: start: 201302
  2. DULERA [Suspect]
     Dosage: 2 PUFFS TWICE A DAY
     Route: 048
  3. SPIRIVA [Concomitant]
  4. COMBIVENT [Concomitant]

REACTIONS (2)
  - Dyspnoea [Not Recovered/Not Resolved]
  - Product quality issue [Unknown]
